FAERS Safety Report 19849875 (Version 1)
Quarter: 2021Q3

REPORT INFORMATION
  Report Type: Spontaneous
  Country: DE (occurrence: DE)
  Receive Date: 20210917
  Receipt Date: 20210917
  Transmission Date: 20211014
  Serious: Yes (Other)
  Sender: FDA-Public Use
  Company Number: DE-ALLERGAN-2132163US

PATIENT
  Sex: Female
  Weight: 2.4 kg

DRUGS (5)
  1. METOPROLOLSUCCINAT [Suspect]
     Active Substance: METOPROLOL SUCCINATE
     Dosage: UNK
  2. IBUPROFEN 400 [Concomitant]
     Active Substance: IBUPROFEN
     Indication: EXPOSURE DURING PREGNANCY
     Dosage: 400 MG, PRN
     Route: 064
  3. BUPRENORPHINE. [Suspect]
     Active Substance: BUPRENORPHINE
     Indication: EXPOSURE DURING PREGNANCY
     Dosage: 8 MG, QD
     Route: 064
     Dates: start: 20200111, end: 20201021
  4. ESCITALOPRAM OXALATE ? BP [Suspect]
     Active Substance: ESCITALOPRAM OXALATE
     Indication: EXPOSURE DURING PREGNANCY
     Dosage: 10 MG, QD
     Route: 064
     Dates: start: 20200111, end: 20201021
  5. METOPROLOLSUCCINAT [Suspect]
     Active Substance: METOPROLOL SUCCINATE
     Indication: EXPOSURE DURING PREGNANCY
     Dosage: 95 MG, QD
     Route: 064
     Dates: start: 20200111, end: 20201021

REACTIONS (4)
  - Sepsis neonatal [Recovered/Resolved]
  - Drug withdrawal syndrome neonatal [Recovered/Resolved]
  - Pregnancy [Unknown]
  - Small for dates baby [Unknown]

NARRATIVE: CASE EVENT DATE: 20201021
